FAERS Safety Report 9308836 (Version 3)
Quarter: 2014Q1

REPORT INFORMATION
  Report Type: Spontaneous
  Country: US (occurrence: US)
  Receive Date: 20130524
  Receipt Date: 20140227
  Transmission Date: 20141002
  Serious: No
  Sender: FDA-Public Use
  Company Number: US-009507513-1305USA013039

PATIENT
  Sex: Male

DRUGS (2)
  1. PROSCAR [Suspect]
     Indication: BENIGN PROSTATIC HYPERPLASIA
     Dosage: UNK
     Route: 048
     Dates: start: 2001
  2. FINASTERIDE [Suspect]
     Indication: BENIGN PROSTATIC HYPERPLASIA
     Dosage: 5 MG, QD
     Route: 048
     Dates: start: 20030203

REACTIONS (18)
  - Penis disorder [Unknown]
  - Erectile dysfunction [Not Recovered/Not Resolved]
  - Gynaecomastia [Unknown]
  - Testicular pain [Unknown]
  - Ejaculation disorder [Unknown]
  - Urinary retention [Recovered/Resolved]
  - Urinary retention [Unknown]
  - Pain [Unknown]
  - Neuritis [Unknown]
  - Radiculopathy [Unknown]
  - Sacroiliitis [Unknown]
  - Major depression [Unknown]
  - Appendicectomy [Unknown]
  - Bladder spasm [Unknown]
  - Rhinitis [Unknown]
  - Hyperlipidaemia [Unknown]
  - Hypertension [Unknown]
  - Presyncope [Unknown]
